FAERS Safety Report 7110551-7 (Version None)
Quarter: 2010Q4

REPORT INFORMATION
  Report Type: 
  Country: None (occurrence: None)
  Receive Date: 20101118
  Receipt Date: 20101105
  Transmission Date: 20110411
  Serious: Yes (Hospitalization)
  Sender: FDA-Public Use
  Company Number: ES-ROCHE-708598

PATIENT
  Sex: Female
  Weight: 56 kg

DRUGS (3)
  1. TOCILIZUMAB [Suspect]
     Indication: RHEUMATOID ARTHRITIS
     Dosage: TEMPORARILY INTERRUPTED. LAST DOSE PRIOR TO SAE: 26 MAY 2010
     Route: 042
     Dates: start: 20090305, end: 20100607
  2. METHOTREXATE [Suspect]
     Indication: RHEUMATOID ARTHRITIS
     Dosage: TEMPORARILY INTERRUPTED. LAST DOSE PRIOR TO SAE: 07 JUNE 2010
     Route: 048
     Dates: start: 20090305, end: 20100607
  3. CORTICOSTEROIDS [Suspect]
     Route: 065

REACTIONS (5)
  - ANAEMIA [None]
  - CEREBRAL HAEMORRHAGE [None]
  - CULTURE URINE POSITIVE [None]
  - ESCHERICHIA INFECTION [None]
  - URINARY TRACT INFECTION [None]
